FAERS Safety Report 9443490 (Version 1)
Quarter: 2013Q3

REPORT INFORMATION
  Report Type: Spontaneous
  Country: US (occurrence: US)
  Receive Date: 20130806
  Receipt Date: 20130806
  Transmission Date: 20140515
  Serious: Yes (Other)
  Sender: FDA-Public Use
  Company Number: CHPA2013US012213

PATIENT
  Age: 72 Year
  Sex: Male

DRUGS (4)
  1. ASCRIPTIN BUFFERED MAX STRENGTH CAPLETS [Suspect]
     Indication: MYALGIA
     Dosage: 500 MG, PRN
     Route: 048
  2. ASCRIPTIN BUFFERED MAX STRENGTH CAPLETS [Suspect]
     Indication: PAIN
  3. ASCRIPTIN BUFFERED REG STRENGTH TABLETS [Suspect]
     Indication: MYALGIA
     Dosage: 650 MG, PRN
  4. ASCRIPTIN BUFFERED REG STRENGTH TABLETS [Suspect]
     Indication: PAIN

REACTIONS (5)
  - Diabetes mellitus [Not Recovered/Not Resolved]
  - Blood glucose increased [Not Recovered/Not Resolved]
  - Arrhythmia [Recovered/Resolved]
  - Muscle spasms [Recovered/Resolved]
  - Underdose [Unknown]
